FAERS Safety Report 16101260 (Version 2)
Quarter: 2019Q2

REPORT INFORMATION
  Report Type: Spontaneous
  Country: US (occurrence: US)
  Receive Date: 20190321
  Receipt Date: 20190611
  Transmission Date: 20190711
  Serious: No
  Sender: FDA-Public Use
  Company Number: US-ACTELION-A-US2019-187124

PATIENT
  Age: 56 Year
  Sex: Male

DRUGS (2)
  1. OPSUMIT [Suspect]
     Active Substance: MACITENTAN
     Indication: PULMONARY ARTERIAL HYPERTENSION
     Dosage: 10 MG, QD
     Route: 048
     Dates: start: 20190208
  2. OPSUMIT [Suspect]
     Active Substance: MACITENTAN
     Indication: IDIOPATHIC PULMONARY FIBROSIS

REACTIONS (4)
  - Adverse event [Unknown]
  - Extra dose administered [Unknown]
  - Emergency care [Unknown]
  - Product prescribing error [Unknown]

NARRATIVE: CASE EVENT DATE: 20190208
